FAERS Safety Report 21861148 (Version 5)
Quarter: 2023Q2

REPORT INFORMATION
  Report Type: Spontaneous
  Country: US (occurrence: US)
  Receive Date: 20230113
  Receipt Date: 20230607
  Transmission Date: 20230722
  Serious: No
  Sender: FDA-Public Use
  Company Number: US-PFIZER INC-PV202300003932

PATIENT
  Age: 83 Year
  Sex: Female

DRUGS (1)
  1. IBRANCE [Suspect]
     Active Substance: PALBOCICLIB
     Dosage: 125 MG

REACTIONS (7)
  - Malaise [Unknown]
  - Respiratory disorder [Unknown]
  - Cough [Unknown]
  - Fall [Unknown]
  - Rotator cuff syndrome [Unknown]
  - Limb discomfort [Unknown]
  - Limb injury [Unknown]

NARRATIVE: CASE EVENT DATE: 20230501
